FAERS Safety Report 20045542 (Version 2)
Quarter: 2022Q4

REPORT INFORMATION
  Report Type: Spontaneous
  Country: JP (occurrence: JP)
  Receive Date: 20211108
  Receipt Date: 20221003
  Transmission Date: 20230113
  Serious: Yes (Hospitalization)
  Sender: FDA-Public Use
  Company Number: JP-BAYER-2021A243367

PATIENT
  Age: 47 Year
  Sex: Female
  Weight: 71 kg

DRUGS (1)
  1. MIRENA [Suspect]
     Active Substance: LEVONORGESTREL
     Indication: Heavy menstrual bleeding
     Dosage: 20?G/DAY
     Route: 015
     Dates: start: 20140805, end: 20210615

REACTIONS (4)
  - Uterine cancer [Unknown]
  - Abdominal pain [Unknown]
  - Intermenstrual bleeding [Unknown]
  - Device use issue [None]

NARRATIVE: CASE EVENT DATE: 20210601
